FAERS Safety Report 11445876 (Version 1)
Quarter: 2015Q3

REPORT INFORMATION
  Report Type: Spontaneous
  Country: US (occurrence: US)
  Receive Date: 20150831
  Receipt Date: 20150831
  Transmission Date: 20151125
  Serious: Yes (Hospitalization)
  Sender: FDA-Public Use
  Company Number: US-ELI_LILLY_AND_COMPANY-US200808001823

PATIENT
  Age: 81 Year
  Sex: Female

DRUGS (20)
  1. CYMBALTA [Suspect]
     Active Substance: DULOXETINE HYDROCHLORIDE
     Indication: DEPRESSION
     Dosage: 60 MG, DAILY (1/D)
     Dates: start: 2007
  2. COREG [Concomitant]
     Active Substance: CARVEDILOL
     Dosage: UNK, 2/D
  3. LASIX [Concomitant]
     Active Substance: FUROSEMIDE
  4. CLOBETASOL [Concomitant]
     Active Substance: CLOBETASOL
  5. ALLEGRA D                          /01367401/ [Concomitant]
  6. EVISTA [Concomitant]
     Active Substance: RALOXIFENE HYDROCHLORIDE
  7. PREVACID [Concomitant]
     Active Substance: LANSOPRAZOLE
  8. AVAPRO [Concomitant]
     Active Substance: IRBESARTAN
  9. HYDRALAZINE HYDROCHLORIDE. [Concomitant]
     Active Substance: HYDRALAZINE HYDROCHLORIDE
     Dosage: UNK, AS NEEDED
  10. FIORICET [Concomitant]
     Active Substance: ACETAMINOPHEN\BUTALBITAL\CAFFEINE
  11. CLARINEX [Concomitant]
     Active Substance: DESLORATADINE
     Indication: HYPERSENSITIVITY
  12. MULTI-VIT [Concomitant]
     Active Substance: VITAMINS
  13. CALCIUM W/VITAMIN D NOS [Concomitant]
     Active Substance: CALCIUM\VITAMIN D
     Route: 045
  14. FOSAMAX [Concomitant]
     Active Substance: ALENDRONATE SODIUM
  15. RAZADYNE [Concomitant]
     Active Substance: GALANTAMINE HYDROBROMIDE
     Dosage: UNK, DAILY (1/D)
  16. ECONAZOLE [Concomitant]
     Active Substance: ECONAZOLE
  17. CICLESONIDE [Concomitant]
     Active Substance: CICLESONIDE
  18. CLONIDINE HYDROCHLORIDE. [Concomitant]
     Active Substance: CLONIDINE HYDROCHLORIDE
  19. NAMENDA [Concomitant]
     Active Substance: MEMANTINE HYDROCHLORIDE
  20. LIPITOR [Concomitant]
     Active Substance: ATORVASTATIN CALCIUM

REACTIONS (2)
  - Cerebral haemorrhage [Recovered/Resolved]
  - Hallucination, auditory [Not Recovered/Not Resolved]

NARRATIVE: CASE EVENT DATE: 20080120
